FAERS Safety Report 10922345 (Version 1)
Quarter: 2015Q1

REPORT INFORMATION
  Report Type: Spontaneous
  Country: GB (occurrence: GB)
  Receive Date: 20150317
  Receipt Date: 20150317
  Transmission Date: 20150721
  Serious: Yes (Other)
  Sender: FDA-Public Use
  Company Number: GB-APOTEX-2015AP007257

PATIENT

DRUGS (1)
  1. MONTELUKAST [Suspect]
     Active Substance: MONTELUKAST SODIUM
     Indication: RHINITIS PERENNIAL
     Dosage: UNK
     Route: 065
     Dates: end: 20150219

REACTIONS (2)
  - Post viral fatigue syndrome [Unknown]
  - Condition aggravated [Unknown]
